FAERS Safety Report 4925149-6 (Version None)
Quarter: 2006Q1

REPORT INFORMATION
  Report Type: 
  Country: None (occurrence: None)
  Receive Date: 20060228
  Receipt Date: 20051205
  Transmission Date: 20060701
  Serious: No
  Sender: FDA-Public Use
  Company Number: US-GLAXOSMITHKLINE-A0584672A

PATIENT
  Age: 67 Year
  Sex: Male

DRUGS (8)
  1. AVODART [Suspect]
     Dosage: .5MG PER DAY
     Route: 048
     Dates: start: 20051126, end: 20051205
  2. ATENOLOL [Concomitant]
     Dosage: 25MG PER DAY
     Route: 065
  3. FLOMAX [Concomitant]
     Dosage: .4MG PER DAY
     Route: 065
  4. SAW PALMETTO [Concomitant]
     Route: 065
  5. ZETIA [Concomitant]
     Route: 065
  6. ASPIRIN [Concomitant]
     Route: 065
  7. PRILOSEC [Concomitant]
     Route: 065
  8. VIAGRA [Concomitant]
     Route: 048

REACTIONS (2)
  - ERECTILE DYSFUNCTION [None]
  - PENILE PAIN [None]
